FAERS Safety Report 15652082 (Version 2)
Quarter: 2019Q2

REPORT INFORMATION
  Report Type: Spontaneous
  Country: US (occurrence: US)
  Receive Date: 20181123
  Receipt Date: 20190404
  Transmission Date: 20190711
  Serious: No
  Sender: FDA-Public Use
  Company Number: US-ASTRAZENECA-2018SF48540

PATIENT
  Sex: Male

DRUGS (1)
  1. BYDUREON BCISE [Suspect]
     Active Substance: EXENATIDE
     Route: 065
     Dates: start: 20181101

REACTIONS (7)
  - Paraesthesia [Unknown]
  - Nausea [Unknown]
  - Peripheral swelling [Unknown]
  - Blood glucose increased [Unknown]
  - Visual impairment [Unknown]
  - Renal pain [Unknown]
  - Injection site pruritus [Recovered/Resolved]
